FAERS Safety Report 4800091-X (Version None)
Quarter: 2005Q4

REPORT INFORMATION
  Report Type: 
  Country: None (occurrence: None)
  Receive Date: 20051012
  Receipt Date: 20051012
  Transmission Date: 20060501
  Serious: Yes (Hospitalization)
  Sender: FDA-Public Use
  Company Number: None

PATIENT
  Sex: Male
  Weight: 62.5964 kg

DRUGS (8)
  1. TEMODAR [Suspect]
     Indication: METASTATIC MALIGNANT MELANOMA
     Dosage: [PRIOR TO ADMISSION]
  2. CORTISONE ACETATE TAB [Concomitant]
  3. LEVOTHYROXINE [Concomitant]
  4. ZOCOR [Concomitant]
  5. TESTOSTERONE [Concomitant]
  6. LOPRESSOR [Concomitant]
  7. ECOTRIN [Concomitant]
  8. NITROGLYCERIN [Concomitant]

REACTIONS (2)
  - ASTHENIA [None]
  - PYREXIA [None]
